FAERS Safety Report 11760010 (Version 1)
Quarter: 2015Q4

REPORT INFORMATION
  Report Type: Spontaneous
  Country: US (occurrence: US)
  Receive Date: 20151120
  Receipt Date: 20151120
  Transmission Date: 20160304
  Serious: No
  Sender: FDA-Public Use
  Company Number: US-ELI_LILLY_AND_COMPANY-US201210000622

PATIENT
  Age: 76 Year
  Sex: Female

DRUGS (2)
  1. FORTEO [Suspect]
     Active Substance: TERIPARATIDE
     Indication: OSTEOPOROSIS
     Dosage: 20 UG, QD
     Route: 065
     Dates: start: 20121001, end: 20121028
  2. FORTEO [Suspect]
     Active Substance: TERIPARATIDE
     Dosage: 20 UG, QD
     Route: 065

REACTIONS (10)
  - Injection site urticaria [Unknown]
  - Pain in extremity [Unknown]
  - Injection site swelling [Unknown]
  - Wrong technique in product usage process [Unknown]
  - Contusion [Unknown]
  - Peripheral swelling [Unknown]
  - Injection site discolouration [Unknown]
  - Muscle disorder [Unknown]
  - Tendon disorder [Unknown]
  - Injection site haemorrhage [Unknown]

NARRATIVE: CASE EVENT DATE: 20121001
